FAERS Safety Report 17030545 (Version 1)
Quarter: 2019Q4

REPORT INFORMATION
  Report Type: Spontaneous
  Country: US (occurrence: US)
  Receive Date: 20191011
  Receipt Date: 20191011
  Transmission Date: 20200122
  Serious: No
  Sender: FDA-Public Use
  Company Number: None

PATIENT
  Age: 46 Year
  Sex: Female

DRUGS (3)
  1. ERYTHROMYCIN. [Concomitant]
     Active Substance: ERYTHROMYCIN
  2. PREDNISONE. [Concomitant]
     Active Substance: PREDNISONE
  3. MAVYRET [Suspect]
     Active Substance: GLECAPREVIR\PIBRENTASVIR
     Indication: CHRONIC HEPATITIS C
     Route: 048
     Dates: start: 20190916

REACTIONS (5)
  - Abdominal pain upper [None]
  - Muscular weakness [None]
  - Muscle spasms [None]
  - Myalgia [None]
  - Irritability [None]

NARRATIVE: CASE EVENT DATE: 20190929
